FAERS Safety Report 5005632-8 (Version None)
Quarter: 2006Q2

REPORT INFORMATION
  Report Type: 
  Country: None (occurrence: None)
  Receive Date: 20060515
  Receipt Date: 20060502
  Transmission Date: 20061013
  Serious: Yes (Hospitalization)
  Sender: FDA-Public Use
  Company Number: GXKR2006GB02468

PATIENT
  Sex: Female

DRUGS (5)
  1. AMOXICILLIN [Suspect]
     Indication: INFECTION
     Dosage: ORAL
     Route: 048
     Dates: start: 20050919, end: 20050922
  2. TRIMETHOPRIM [Suspect]
     Indication: INFECTION
     Dosage: 200 MG BID ORAL
     Route: 048
     Dates: start: 20050920, end: 20050922
  3. DOLUSEPIN [Concomitant]
  4. ENALAPRIL MALEATE [Concomitant]
  5. ADCAL (CARBAZOCHROME) [Concomitant]

REACTIONS (3)
  - HAEMATOMA [None]
  - INTERNATIONAL NORMALISED RATIO INCREASED [None]
  - RECTAL HAEMORRHAGE [None]
